FAERS Safety Report 16717515 (Version 2)
Quarter: 2019Q4

REPORT INFORMATION
  Report Type: Spontaneous
  Country: AD (occurrence: AD)
  Receive Date: 20190819
  Receipt Date: 20191016
  Transmission Date: 20200122
  Serious: Yes (Other)
  Sender: FDA-Public Use
  Company Number: AD-SA-2019SA169057

PATIENT
  Sex: Female

DRUGS (1)
  1. KEVZARA [Suspect]
     Active Substance: SARILUMAB

REACTIONS (6)
  - Nephrotic syndrome [Unknown]
  - Dermatitis bullous [Recovering/Resolving]
  - Skin ulcer [Recovering/Resolving]
  - Renal tubular injury [Unknown]
  - Amyloidosis [Unknown]
  - Skin hyperpigmentation [Recovering/Resolving]
